FAERS Safety Report 12140751 (Version 1)
Quarter: 2016Q1

REPORT INFORMATION
  Report Type: Spontaneous
  Country: US (occurrence: None)
  Receive Date: 20160302
  Receipt Date: 20160302
  Transmission Date: 20160526
  Serious: Yes (Other)
  Sender: FDA-Public Use
  Company Number: None

PATIENT
  Age: 61 Year
  Sex: Female
  Weight: 160 kg

DRUGS (11)
  1. PENNSAID [Suspect]
     Active Substance: DICLOFENAC SODIUM
     Indication: PRODUCT USED FOR UNKNOWN INDICATION
     Dosage: 2% TR SOL. 40 MG X2 DAILY, TWICE DAILY, SKIN
     Dates: start: 201512, end: 20160105
  2. LICORICE ROOT [Concomitant]
  3. FLECANIDE [Concomitant]
     Active Substance: FLECAINIDE
  4. THYROID MEDS. [Concomitant]
  5. TUMS [Concomitant]
     Active Substance: CALCIUM CARBONATE
  6. HORMONES [Concomitant]
     Active Substance: UNSPECIFIED INGREDIENT
  7. ZANTAC [Concomitant]
     Active Substance: RANITIDINE HYDROCHLORIDE
  8. HERBAL TEAS [Concomitant]
     Active Substance: HERBALS
  9. ATENOLOL. [Concomitant]
     Active Substance: ATENOLOL
  10. ZOLOFT [Concomitant]
     Active Substance: SERTRALINE HYDROCHLORIDE
  11. BUPROPION. [Concomitant]
     Active Substance: BUPROPION

REACTIONS (4)
  - Insomnia [None]
  - Malaise [None]
  - Abdominal discomfort [None]
  - Abdominal pain upper [None]

NARRATIVE: CASE EVENT DATE: 20160101
